FAERS Safety Report 5940072-6 (Version None)
Quarter: 2008Q4

REPORT INFORMATION
  Report Type: 
  Country: None (occurrence: None)
  Receive Date: 20081104
  Receipt Date: 20081027
  Transmission Date: 20090506
  Serious: Yes (Hospitalization, Other)
  Sender: FDA-Public Use
  Company Number: PHNU2008DE01941

PATIENT
  Sex: Female

DRUGS (7)
  1. RASILEZ [Suspect]
     Indication: HYPERTENSION
     Dosage: 1 DF, QD
     Route: 048
     Dates: start: 20080501
  2. SIMVASTATIN [Concomitant]
  3. PENTALONG [Concomitant]
     Dosage: 1 DF/DAY
     Route: 048
     Dates: start: 20080501
  4. CORDINATE [Concomitant]
     Dosage: 1 DF, QD
     Route: 048
     Dates: start: 20080401
  5. ACETYLSALICYLIC ACID SRT [Concomitant]
     Dosage: UNK
  6. BELOC ZOK [Concomitant]
     Dosage: 190 MG/DAY
     Dates: start: 19930101
  7. RAMIPRIL [Concomitant]

REACTIONS (3)
  - CATHETERISATION CARDIAC [None]
  - PARADOXICAL PRESSOR RESPONSE [None]
  - VASCULAR GRAFT [None]
